FAERS Safety Report 16713560 (Version 1)
Quarter: 2019Q3

REPORT INFORMATION
  Report Type: Spontaneous
  Country: US (occurrence: US)
  Receive Date: 20190819
  Receipt Date: 20190819
  Transmission Date: 20191004
  Serious: No
  Sender: FDA-Public Use
  Company Number: US-ACCORD-136255

PATIENT
  Sex: Male

DRUGS (3)
  1. CARTIA [Concomitant]
     Dosage: 180 MG
  2. DOXAZOSIN [Concomitant]
     Active Substance: DOXAZOSIN MESYLATE
     Dosage: 4 MG
  3. OLMESARTAN ACCORD [Suspect]
     Active Substance: OLMESARTAN
     Indication: HYPERTENSION
     Dosage: DOSE DECREASED TO HALF TABLET
     Route: 048

REACTIONS (3)
  - Product odour abnormal [Unknown]
  - Blood pressure decreased [Recovered/Resolved]
  - Wrong schedule [Unknown]
